FAERS Safety Report 23265319 (Version 1)
Quarter: 2023Q4

REPORT INFORMATION
  Report Type: Spontaneous
  Country: US (occurrence: US)
  Receive Date: 20231206
  Receipt Date: 20231206
  Transmission Date: 20240109
  Serious: No
  Sender: FDA-Public Use
  Company Number: US-AUROBINDO-AUR-APL-2023-031278

PATIENT
  Sex: Female

DRUGS (1)
  1. GUAIFENESIN [Suspect]
     Active Substance: GUAIFENESIN
     Indication: Pulmonary congestion
     Dosage: 1 DOSAGE FORM, TWO TIMES A DAY
     Route: 065

REACTIONS (1)
  - Drug ineffective [Unknown]
